FAERS Safety Report 9470171 (Version 1)
Quarter: 2013Q3

REPORT INFORMATION
  Report Type: Spontaneous
  Country: US (occurrence: None)
  Receive Date: 20130820
  Receipt Date: 20130820
  Transmission Date: 20140515
  Serious: No
  Sender: FDA-Public Use
  Company Number: None

PATIENT
  Age: 21 Day
  Sex: Female
  Weight: 96.16 kg

DRUGS (1)
  1. MONTELUKAST [Suspect]
     Route: 048
     Dates: start: 20130804, end: 20130809

REACTIONS (2)
  - Urticaria [None]
  - Product substitution issue [None]
